FAERS Safety Report 15715152 (Version 3)
Quarter: 2019Q1

REPORT INFORMATION
  Report Type: Spontaneous
  Country: JP (occurrence: JP)
  Receive Date: 20181212
  Receipt Date: 20190131
  Transmission Date: 20190417
  Serious: No
  Sender: FDA-Public Use
  Company Number: PHJP2018JP020205

PATIENT
  Age: 37 Year
  Sex: Female

DRUGS (1)
  1. AZORGA COMBINATION OPHTHALMIC SUSPENSION [Suspect]
     Active Substance: BRINZOLAMIDE\TIMOLOL MALEATE
     Indication: GLAUCOMA
     Dosage: 1 GTT, UNK
     Route: 047
     Dates: start: 20181126, end: 20181128

REACTIONS (9)
  - Conjunctival follicles [Recovered/Resolved]
  - Eyelid oedema [Recovering/Resolving]
  - Conjunctival oedema [Recovered/Resolved]
  - Palpitations [Recovered/Resolved]
  - Conjunctival hyperaemia [Recovering/Resolving]
  - Dyspnoea [Recovered/Resolved]
  - Somnolence [Recovering/Resolving]
  - Eye pain [Recovered/Resolved]
  - Foreign body sensation in eyes [Recovering/Resolving]

NARRATIVE: CASE EVENT DATE: 20181127
